FAERS Safety Report 14766911 (Version 2)
Quarter: 2018Q2

REPORT INFORMATION
  Report Type: Spontaneous
  Country: US (occurrence: US)
  Receive Date: 20180417
  Receipt Date: 20180424
  Transmission Date: 20180711
  Serious: Yes (Other)
  Sender: FDA-Public Use
  Company Number: US-ROCHE-2106188

PATIENT
  Age: 44 Year
  Sex: Female

DRUGS (5)
  1. RITUXIMAB. [Suspect]
     Active Substance: RITUXIMAB
     Indication: PRODUCT USED FOR UNKNOWN INDICATION
     Route: 065
     Dates: start: 20170804
  2. OCREVUS [Suspect]
     Active Substance: OCRELIZUMAB
     Route: 065
     Dates: start: 20170825
  3. OCREVUS [Suspect]
     Active Substance: OCRELIZUMAB
     Indication: MULTIPLE SCLEROSIS
     Route: 065
     Dates: start: 20180223
  4. OCREVUS [Suspect]
     Active Substance: OCRELIZUMAB
     Route: 065
     Dates: start: 20170224
  5. RITUXIMAB. [Suspect]
     Active Substance: RITUXIMAB
     Route: 065
     Dates: start: 20170824

REACTIONS (2)
  - Ectopic pregnancy [Unknown]
  - Maternal exposure during pregnancy [Unknown]
